FAERS Safety Report 9609204 (Version 2)
Quarter: 2013Q4

REPORT INFORMATION
  Report Type: Spontaneous
  Country: US (occurrence: US)
  Receive Date: 20131009
  Receipt Date: 20131009
  Transmission Date: 20140711
  Serious: No
  Sender: FDA-Public Use
  Company Number: US-PURDUE-USA-2012-0094633

PATIENT
  Sex: Female

DRUGS (4)
  1. BUTRANS [Suspect]
     Indication: PAIN
     Dosage: 10 MCG, UNK
     Route: 062
  2. BUTRANS [Suspect]
     Dosage: 20 MCG, UNK
     Route: 062
  3. NORCO [Concomitant]
     Indication: PAIN
     Dosage: 1-2 TABLETS PER DAY AS NEEDED
     Route: 048
  4. SPIRIX [Concomitant]
     Indication: PAIN
     Dosage: UNK
     Route: 065

REACTIONS (2)
  - Inadequate analgesia [Unknown]
  - Drug ineffective [Unknown]
